FAERS Safety Report 10239606 (Version 3)
Quarter: 2014Q3

REPORT INFORMATION
  Report Type: Report from Study
  Country: FR (occurrence: FR)
  Receive Date: 20140616
  Receipt Date: 20140701
  Transmission Date: 20150326
  Serious: Yes (Death, Hospitalization)
  Sender: FDA-Public Use
  Company Number: FR-JNJFOC-20140510424

PATIENT
  Age: 61 Year
  Sex: Male
  Weight: 69.5 kg

DRUGS (5)
  1. IBRUTINIB [Suspect]
     Active Substance: IBRUTINIB
     Indication: MANTLE CELL LYMPHOMA
     Route: 048
  2. MERONEM [Concomitant]
     Active Substance: MEROPENEM
     Indication: CANDIDA INFECTION
  3. CANCIDAS [Concomitant]
     Active Substance: CASPOFUNGIN ACETATE
  4. AN UNKNOWN MEDICATION [Concomitant]
     Active Substance: UNSPECIFIED INGREDIENT
  5. ZYVOXID [Concomitant]
     Active Substance: LINEZOLID

REACTIONS (4)
  - Death [Fatal]
  - Candida infection [Unknown]
  - Disease progression [Fatal]
  - General physical health deterioration [Unknown]

NARRATIVE: CASE EVENT DATE: 20140502
